FAERS Safety Report 7280059-7 (Version None)
Quarter: 2011Q1

REPORT INFORMATION
  Report Type: 
  Country: None (occurrence: None)
  Receive Date: 20110126
  Receipt Date: 20110111
  Transmission Date: 20110831
  Serious: Yes (Death, Other)
  Sender: FDA-Public Use
  Company Number: UTC-004195

PATIENT
  Age: 79 Year
  Sex: Female
  Weight: 52.6 kg

DRUGS (3)
  1. DIURETICS (DIURETICS) [Concomitant]
  2. AMLODIPINE [Concomitant]
  3. REMODULIN [Suspect]
     Indication: PULMONARY ARTERIAL HYPERTENSION
     Dosage: (.034 ML/HR),SUBCUTANEOUS
     Route: 058
     Dates: start: 20090601

REACTIONS (1)
  - FALL [None]
